FAERS Safety Report 10345812 (Version 1)
Quarter: 2014Q3

REPORT INFORMATION
  Report Type: Spontaneous
  Country: BR (occurrence: BR)
  Receive Date: 20140728
  Receipt Date: 20140728
  Transmission Date: 20150326
  Serious: Yes (Other)
  Sender: FDA-Public Use
  Company Number: PHHY2014BR090478

PATIENT
  Age: 28 Year
  Sex: Female

DRUGS (2)
  1. OCTREOTIDE [Suspect]
     Active Substance: OCTREOTIDE
     Indication: ACROMEGALY
     Dosage: 15 MG/MONTH
  2. PREDNISONE. [Suspect]
     Active Substance: PREDNISONE
     Indication: BLOOD CORTISOL DECREASED
     Dosage: 2.5 MG/DAY
     Route: 048

REACTIONS (5)
  - Proteinuria [Recovered/Resolved]
  - Blood cortisol decreased [Unknown]
  - Pre-eclampsia [Recovered/Resolved]
  - Premature labour [Unknown]
  - Maternal exposure during pregnancy [Unknown]
